FAERS Safety Report 4275492-1 (Version None)
Quarter: 2004Q1

REPORT INFORMATION
  Report Type: 
  Country: None (occurrence: None)
  Receive Date: 20040116
  Receipt Date: 20040107
  Transmission Date: 20041129
  Serious: Yes (Other)
  Sender: FDA-Public Use
  Company Number: US062803

PATIENT
  Age: 39 Year
  Sex: Male

DRUGS (1)
  1. ENBREL [Suspect]
     Indication: REITER'S SYNDROME
     Dosage: EVERY OTHER DAY, SC
     Route: 058
     Dates: start: 19980101

REACTIONS (2)
  - GINGIVAL BLEEDING [None]
  - MYELODYSPLASTIC SYNDROME [None]
